FAERS Safety Report 4845868-X (Version None)
Quarter: 2005Q4

REPORT INFORMATION
  Report Type: 
  Country: None (occurrence: None)
  Receive Date: 20051130
  Receipt Date: 20051122
  Transmission Date: 20060501
  Serious: Yes (Death)
  Sender: FDA-Public Use
  Company Number: 2005-134934-NL

PATIENT
  Age: 75 Year
  Sex: Male

DRUGS (7)
  1. DANAPAROID SODIUM [Suspect]
     Indication: THROMBOCYTOPENIA
     Dosage: ANTI_XA
     Dates: start: 20050824, end: 20050828
  2. DANAPAROID SODIUM [Suspect]
     Indication: THROMBOCYTOPENIA
     Dosage: ANTI_XA
     Dates: start: 20050831, end: 20050904
  3. HEPARIN [Suspect]
     Indication: HAEMODIALYSIS
     Dosage: INTRAVENOUS (NOS)
     Route: 042
     Dates: start: 20050810, end: 20050814
  4. ENOXAPARIN SODIUM [Suspect]
     Dosage: DF SUBCUTANEOUS
     Route: 058
     Dates: start: 20050804, end: 20050809
  5. ENOXAPARIN SODIUM [Suspect]
     Dosage: DF SUBCUTANEOUS
     Route: 058
     Dates: start: 20050815, end: 20050820
  6. ENOXAPARIN SODIUM [Suspect]
     Dosage: DF SUBCUTANEOUS
     Route: 058
     Dates: start: 20050822
  7. ANTITHROMBIN III [Concomitant]

REACTIONS (7)
  - COLON CANCER [None]
  - DRUG INEFFECTIVE [None]
  - HAEMODIALYSIS [None]
  - POSTOPERATIVE INFECTION [None]
  - RENAL IMPAIRMENT [None]
  - SEPTIC SHOCK [None]
  - THROMBOCYTOPENIA [None]
